FAERS Safety Report 18611123 (Version 1)
Quarter: 2020Q4

REPORT INFORMATION
  Report Type: Spontaneous
  Country: US (occurrence: US)
  Receive Date: 20201213
  Receipt Date: 20201213
  Transmission Date: 20210114
  Serious: Yes (Other)
  Sender: FDA-Public Use
  Company Number: None

PATIENT
  Age: 50 Year
  Sex: Female
  Weight: 73.35 kg

DRUGS (11)
  1. BOTOX [Concomitant]
     Active Substance: ONABOTULINUMTOXINA
  2. OLIVE LEAF EXTRACT [Concomitant]
  3. EMGALITY [Suspect]
     Active Substance: GALCANEZUMAB-GNLM
     Indication: MIGRAINE
     Dates: start: 20191216, end: 20200916
  4. NARATRIPTAN [Concomitant]
     Active Substance: NARATRIPTAN HYDROCHLORIDE
  5. BACLOFEN. [Concomitant]
     Active Substance: BACLOFEN
  6. ALLEGRA [Concomitant]
     Active Substance: FEXOFENADINE HYDROCHLORIDE
  7. VITAMIN D [Concomitant]
     Active Substance: VITAMIN D NOS
  8. OLOPATADINE. [Concomitant]
     Active Substance: OLOPATADINE
  9. TORODOL [Concomitant]
  10. PROBIOTICS [Concomitant]
     Active Substance: PROBIOTICS NOS
  11. ODANESETRON [Concomitant]

REACTIONS (6)
  - Wheezing [None]
  - Cough [None]
  - Skin irritation [None]
  - Asthma [None]
  - Pruritus [None]
  - Drug ineffective [None]

NARRATIVE: CASE EVENT DATE: 20200501
